FAERS Safety Report 24875179 (Version 1)
Quarter: 2025Q1

REPORT INFORMATION
  Report Type: Spontaneous
  Country: FR (occurrence: FR)
  Receive Date: 20250122
  Receipt Date: 20250122
  Transmission Date: 20250409
  Serious: Yes (Other)
  Sender: OTSUKA
  Company Number: FR-OTSUKA-2025_001246

PATIENT
  Age: 9 Year
  Sex: Female

DRUGS (1)
  1. ABILIFY [Suspect]
     Active Substance: ARIPIPRAZOLE
     Indication: Autism spectrum disorder
     Route: 065
     Dates: start: 202412

REACTIONS (5)
  - Depressed level of consciousness [Unknown]
  - Decreased appetite [Unknown]
  - Somnolence [Unknown]
  - Off label use [Unknown]
  - Off label use [Unknown]

NARRATIVE: CASE EVENT DATE: 20241201
